FAERS Safety Report 16730239 (Version 13)
Quarter: 2023Q1

REPORT INFORMATION
  Report Type: Report from Study
  Country: JP (occurrence: JP)
  Receive Date: 20190822
  Receipt Date: 20230201
  Transmission Date: 20230418
  Serious: Yes (Death, Life-Threatening, Hospitalization, Other)
  Sender: FDA-Public Use
  Company Number: JP-ONO-2019JP028383

PATIENT
  Age: 69 Year
  Sex: Female
  Weight: 53.6 kg

DRUGS (19)
  1. ETELCALCETIDE [Suspect]
     Active Substance: ETELCALCETIDE
     Indication: Hyperparathyroidism secondary
     Dosage: 2.5 MG, Q56H
     Route: 010
     Dates: start: 20190211, end: 20200422
  2. ETELCALCETIDE [Suspect]
     Active Substance: ETELCALCETIDE
     Dosage: 2.5 MG, Q84H
     Route: 010
     Dates: start: 20200424
  3. DARBEPOETIN ALFA [Concomitant]
     Active Substance: DARBEPOETIN ALFA
     Dosage: 60 UG, QW
     Route: 065
     Dates: start: 20191014, end: 20191202
  4. DARBEPOETIN ALFA [Concomitant]
     Active Substance: DARBEPOETIN ALFA
     Dosage: 30 UG, QW
     Dates: start: 20200323, end: 20200420
  5. DARBEPOETIN ALFA [Concomitant]
     Active Substance: DARBEPOETIN ALFA
     Dosage: 60 UG, QW
     Dates: start: 20190318
  6. DARBEPOETIN ALFA [Concomitant]
     Active Substance: DARBEPOETIN ALFA
     Dosage: 30 UG, QW
     Dates: start: 20190325, end: 20190617
  7. DARBEPOETIN ALFA [Concomitant]
     Active Substance: DARBEPOETIN ALFA
     Dosage: 40 UG, QW
     Dates: start: 20190624, end: 20191007
  8. OXAROL [Concomitant]
     Active Substance: MAXACALCITOL
     Dosage: 2.5 UG, QW
     Route: 065
     Dates: end: 20181109
  9. OXAROL [Concomitant]
     Active Substance: MAXACALCITOL
     Dosage: 2.5 MICROGRAM, 3 TIMES/WK
     Route: 065
     Dates: start: 20181112, end: 20190308
  10. OXAROL [Concomitant]
     Active Substance: MAXACALCITOL
     Dosage: 5 MUG, Q84H
     Route: 065
     Dates: start: 20190311, end: 20190805
  11. OXAROL [Concomitant]
     Active Substance: MAXACALCITOL
     Dosage: 2.5 MUG, QW
     Route: 065
     Dates: start: 20190313, end: 20190807
  12. OXAROL [Concomitant]
     Active Substance: MAXACALCITOL
     Dosage: 2.5 MUG, Q84H
     Route: 065
     Dates: start: 20190809, end: 20200417
  13. OXAROL [Concomitant]
     Active Substance: MAXACALCITOL
     Dosage: 5 MUG, QW
     Route: 065
     Dates: start: 20190812, end: 20200504
  14. OXAROL [Concomitant]
     Active Substance: MAXACALCITOL
     Dosage: 2.5 MUG, QW
     Route: 065
     Dates: start: 20200424, end: 20200501
  15. FOSRENOL [Concomitant]
     Active Substance: LANTHANUM CARBONATE
     Dosage: 500 MG, EVERYDAY
     Route: 065
     Dates: end: 20190219
  16. FOSRENOL [Concomitant]
     Active Substance: LANTHANUM CARBONATE
     Dosage: 1000 MG, EVERYDAY
     Route: 065
     Dates: start: 20190220, end: 20191120
  17. MIRCERA [Concomitant]
     Active Substance: METHOXY POLYETHYLENE GLYCOL-EPOETIN BETA
     Dosage: 300 UG, Q4W
     Route: 065
     Dates: start: 20191209, end: 20200316
  18. MIRCERA [Concomitant]
     Active Substance: METHOXY POLYETHYLENE GLYCOL-EPOETIN BETA
     Dosage: 300 UG, Q4W
     Route: 065
     Dates: start: 20200427, end: 20200427
  19. Fesin [Concomitant]
     Dosage: 40 MG, QW
     Route: 065
     Dates: start: 20190920, end: 20191122

REACTIONS (9)
  - Asthenia [Fatal]
  - Pneumonia [Recovering/Resolving]
  - Shunt stenosis [Recovering/Resolving]
  - Shunt occlusion [Recovering/Resolving]
  - Shunt occlusion [Recovering/Resolving]
  - Shunt stenosis [Recovering/Resolving]
  - Shunt occlusion [Recovering/Resolving]
  - Shunt stenosis [Recovering/Resolving]
  - Shunt stenosis [Recovering/Resolving]

NARRATIVE: CASE EVENT DATE: 20190430
